FAERS Safety Report 24609183 (Version 2)
Quarter: 2024Q4

REPORT INFORMATION
  Report Type: Spontaneous
  Country: BR (occurrence: BR)
  Receive Date: 20241112
  Receipt Date: 20241121
  Transmission Date: 20250114
  Serious: Yes (Other)
  Sender: PFIZER
  Company Number: BR-PFIZER INC-202400297920

PATIENT
  Age: 61 Year
  Sex: Male
  Weight: 51.4 kg

DRUGS (2)
  1. RITUXIMAB [Suspect]
     Active Substance: RITUXIMAB
     Indication: Follicular lymphoma
     Dosage: 582.37 MG, CYCLIC
     Route: 042
     Dates: start: 20241028, end: 20241028
  2. RITUXIMAB [Suspect]
     Active Substance: RITUXIMAB
     Dosage: 582.37 CYCLIC
     Dates: start: 20241028, end: 20241028

REACTIONS (3)
  - Tachycardia [Recovered/Resolved]
  - Chills [Recovered/Resolved]
  - Off label use [Unknown]

NARRATIVE: CASE EVENT DATE: 20241028
